FAERS Safety Report 6678073-5 (Version None)
Quarter: 2010Q2

REPORT INFORMATION
  Report Type: 
  Country: None (occurrence: None)
  Receive Date: 20100412
  Receipt Date: 20100408
  Transmission Date: 20101027
  Serious: Yes (Death, Hospitalization)
  Sender: FDA-Public Use
  Company Number: PHHY2010TW22294

PATIENT
  Age: 57 Year
  Sex: Female
  Weight: 52.3 kg

DRUGS (10)
  1. CYCLOSPORINE [Suspect]
     Indication: RENAL TRANSPLANT
     Dosage: 500 MG, UNK
  2. CYCLOSPORINE [Suspect]
     Indication: PROPHYLAXIS AGAINST TRANSPLANT REJECTION
     Dosage: 250 MG, BID
  3. CYCLOSPORINE [Suspect]
     Dosage: 50 MG, BID
     Dates: start: 20030212
  4. CYCLOSPORINE [Suspect]
     Dosage: 150 MG, BID
     Dates: start: 20030213
  5. METHYLPREDNISOLONE [Concomitant]
     Indication: RENAL TRANSPLANT
     Dosage: 1000 MG, UNK
     Route: 042
  6. METHYLPREDNISOLONE [Concomitant]
     Indication: PROPHYLAXIS AGAINST TRANSPLANT REJECTION
  7. ANTITHYMOCYTE IMMUNOGLOBULIN [Concomitant]
     Indication: RENAL TRANSPLANT
  8. FK 506 [Concomitant]
     Indication: RENAL TRANSPLANT
  9. MYCOPHENOLATE MOFETIL [Concomitant]
     Indication: RENAL TRANSPLANT
     Dosage: UNK
     Dates: start: 20030211
  10. MYCOPHENOLATE MOFETIL [Concomitant]
     Dosage: 500 MG, BID
     Dates: start: 20030213

REACTIONS (15)
  - BLOOD PRESSURE INCREASED [None]
  - CHILLS [None]
  - CREATININE RENAL CLEARANCE DECREASED [None]
  - DISEASE PROGRESSION [None]
  - DYSPNOEA [None]
  - HEART RATE INCREASED [None]
  - MULTI-ORGAN FAILURE [None]
  - PNEUMONIA [None]
  - PULMONARY OEDEMA [None]
  - PYREXIA [None]
  - RENAL IMPAIRMENT [None]
  - RENAL TUBULAR NECROSIS [None]
  - SEPSIS [None]
  - SEPTIC SHOCK [None]
  - URINE OUTPUT DECREASED [None]
